FAERS Safety Report 9605832 (Version 1)
Quarter: 2013Q4

REPORT INFORMATION
  Report Type: Spontaneous
  Country: US (occurrence: US)
  Receive Date: 20131008
  Receipt Date: 20131008
  Transmission Date: 20140711
  Serious: No
  Sender: FDA-Public Use
  Company Number: US-AMGEN-USASP2013063946

PATIENT
  Sex: Female

DRUGS (8)
  1. XGEVA [Suspect]
     Indication: BREAST CANCER
     Dosage: UNK UNK, Q6WK
     Route: 065
     Dates: start: 2012
  2. TAXOTERE [Concomitant]
     Dosage: UNK
     Dates: start: 2012
  3. HERCEPTIN [Concomitant]
     Dosage: UNK UNK, Q3WK
     Dates: start: 2012
  4. ALOXI [Concomitant]
     Dosage: UNK
     Dates: start: 2012
  5. PERJETA [Concomitant]
     Dosage: UNK UNK, Q3WK
     Dates: start: 2012
  6. DECADRON                           /00016001/ [Concomitant]
     Dosage: UNK
     Dates: start: 2012
  7. BENADRYL                           /00000402/ [Concomitant]
     Dosage: UNK
     Dates: start: 2012
  8. CHEMOTHERAPEUTICS [Concomitant]
     Dosage: UNK
     Dates: start: 20130403

REACTIONS (1)
  - Back pain [Unknown]
